FAERS Safety Report 10032439 (Version 1)
Quarter: 2014Q1

REPORT INFORMATION
  Report Type: Spontaneous
  Country: IT (occurrence: None)
  Receive Date: 20140320
  Receipt Date: 20140320
  Transmission Date: 20141002
  Serious: Yes (Hospitalization)
  Sender: FDA-Public Use
  Company Number: AUR-APL-2014-03035

PATIENT
  Age: 35 Year
  Sex: Female

DRUGS (2)
  1. LEVOFLOXACIN (LEVOFLOXACIN) [Suspect]
     Indication: MENISCUS REMOVAL
     Dosage: 500MG, 1D, ORAL
     Route: 048
     Dates: start: 20140205, end: 20140209
  2. CLEXANE (ENOXAPARIN SODIUM) [Suspect]
     Indication: MENISCUS REMOVAL
     Dates: start: 20140131, end: 20140209

REACTIONS (4)
  - Erythema [None]
  - Pruritus [None]
  - Rash [None]
  - Adverse drug reaction [None]
